FAERS Safety Report 20055351 (Version 3)
Quarter: 2022Q2

REPORT INFORMATION
  Report Type: Report from Study
  Country: US (occurrence: US)
  Receive Date: 20211110
  Receipt Date: 20220406
  Transmission Date: 20220721
  Serious: Yes (Hospitalization, Other)
  Sender: FDA-Public Use
  Company Number: US-ABBVIE-21K-163-4018703-00

PATIENT
  Sex: Female
  Weight: 50.848 kg

DRUGS (6)
  1. HUMIRA [Suspect]
     Active Substance: ADALIMUMAB
     Indication: Crohn^s disease
     Route: 058
     Dates: start: 20200611, end: 202110
  2. HUMIRA [Suspect]
     Active Substance: ADALIMUMAB
     Route: 058
     Dates: start: 202111
  3. HUMIRA [Suspect]
     Active Substance: ADALIMUMAB
     Dosage: DOUBLING THE DOSE
     Route: 058
     Dates: end: 202201
  4. IMURAN [Concomitant]
     Active Substance: AZATHIOPRINE
     Indication: Crohn^s disease
  5. PANTOPRAZOLE [Concomitant]
     Active Substance: PANTOPRAZOLE
     Indication: Product used for unknown indication
  6. ERYTHROMYCIN [Concomitant]
     Active Substance: ERYTHROMYCIN
     Indication: Product used for unknown indication

REACTIONS (30)
  - Large intestinal obstruction [Recovered/Resolved]
  - Radius fracture [Not Recovered/Not Resolved]
  - Abdominal distension [Recovered/Resolved]
  - Pyrexia [Recovering/Resolving]
  - Fall [Recovered/Resolved]
  - Oropharyngeal pain [Recovering/Resolving]
  - Headache [Recovering/Resolving]
  - Abdominal pain upper [Recovering/Resolving]
  - Malaise [Unknown]
  - Nausea [Not Recovered/Not Resolved]
  - Anxiety [Recovering/Resolving]
  - Diarrhoea [Recovering/Resolving]
  - Respiratory tract infection bacterial [Not Recovered/Not Resolved]
  - Streptococcal infection [Recovered/Resolved]
  - Joint dislocation [Not Recovered/Not Resolved]
  - Chest discomfort [Not Recovered/Not Resolved]
  - Cough [Recovering/Resolving]
  - Dyspnoea [Recovering/Resolving]
  - Speech disorder [Not Recovered/Not Resolved]
  - Constipation [Recovering/Resolving]
  - Crohn^s disease [Not Recovered/Not Resolved]
  - Bacterial infection [Recovered/Resolved]
  - Arthralgia [Not Recovered/Not Resolved]
  - Cardiac valve disease [Unknown]
  - Pain [Unknown]
  - Volvulus [Unknown]
  - Red blood cell count decreased [Unknown]
  - Macrocytosis [Unknown]
  - Vascular access site complication [Unknown]
  - Skin fissures [Unknown]

NARRATIVE: CASE EVENT DATE: 20210101
